FAERS Safety Report 13158460 (Version 1)
Quarter: 2017Q1

REPORT INFORMATION
  Report Type: Spontaneous
  Country: ZA (occurrence: ZA)
  Receive Date: 20170127
  Receipt Date: 20170127
  Transmission Date: 20170428
  Serious: Yes (Life-Threatening)
  Sender: FDA-Public Use
  Company Number: ZA-NOVOPROD-527657

PATIENT
  Age: 51 Year
  Sex: Female
  Weight: 84 kg

DRUGS (3)
  1. ACTRAPHANE HM [Suspect]
     Active Substance: INSULIN HUMAN
     Indication: DIABETES MELLITUS
     Dosage: 8 IU, BID (8 UNITS IN THE MORNING AND AT NIGHT)
     Route: 058
     Dates: start: 20160512, end: 20160514
  2. DIAMICRON [Suspect]
     Active Substance: GLICLAZIDE
     Indication: PRODUCT USED FOR UNKNOWN INDICATION
     Dosage: UNK
     Route: 065
  3. GLUCOPHAGE [Concomitant]
     Active Substance: METFORMIN HYDROCHLORIDE
     Dosage: UNK

REACTIONS (4)
  - Rash generalised [Unknown]
  - Lip swelling [Unknown]
  - Swollen tongue [Unknown]
  - Pruritus [Unknown]

NARRATIVE: CASE EVENT DATE: 20160514
